FAERS Safety Report 5759582-X (Version None)
Quarter: 2008Q2

REPORT INFORMATION
  Report Type: 
  Country: None (occurrence: None)
  Receive Date: 20080605
  Receipt Date: 20080602
  Transmission Date: 20081010
  Serious: Yes (Death)
  Sender: FDA-Public Use
  Company Number: JP-ASTRAZENECA-2008AP03957

PATIENT
  Age: 21270 Day
  Sex: Female
  Weight: 51 kg

DRUGS (1)
  1. ARIMIDEX [Suspect]
     Indication: BREAST CANCER
     Route: 048
     Dates: start: 20020508, end: 20060110

REACTIONS (1)
  - TRANSVERSE SINUS THROMBOSIS [None]
